FAERS Safety Report 6983958-6 (Version None)
Quarter: 2010Q3

REPORT INFORMATION
  Report Type: 
  Country: None (occurrence: None)
  Receive Date: 20100914
  Receipt Date: 20090713
  Transmission Date: 20110219
  Serious: No
  Sender: FDA-Public Use
  Company Number: US-WYE-H09150409

PATIENT
  Sex: Female
  Weight: 57.2 kg

DRUGS (2)
  1. PRISTIQ [Suspect]
     Indication: DEPRESSION
     Route: 048
     Dates: start: 20090301
  2. MELATONIN [Concomitant]

REACTIONS (1)
  - MENSTRUATION DELAYED [None]
